FAERS Safety Report 12142751 (Version 1)
Quarter: 2016Q1

REPORT INFORMATION
  Report Type: Spontaneous
  Country: US (occurrence: US)
  Receive Date: 20160303
  Receipt Date: 20160303
  Transmission Date: 20160526
  Serious: No
  Sender: FDA-Public Use
  Company Number: US-PERRIGO-13US011528

PATIENT
  Age: 62 Year
  Sex: Female
  Weight: 66.21 kg

DRUGS (3)
  1. ESTRADIOL. [Concomitant]
     Active Substance: ESTRADIOL
     Indication: HORMONE THERAPY
     Dosage: UNK
     Route: 065
     Dates: start: 201307
  2. BETAMETHASONE VALERATE. [Suspect]
     Active Substance: BETAMETHASONE VALERATE
     Indication: SKIN DISORDER
     Dosage: 1 SMALL APPLICATION, BID
     Route: 061
     Dates: start: 20130914, end: 20131001
  3. BETAMETHASONE VALERATE. [Suspect]
     Active Substance: BETAMETHASONE VALERATE
     Dosage: 1 SMALL APPLICATION, BID
     Route: 061
     Dates: start: 20130914, end: 20131001

REACTIONS (2)
  - Drug ineffective [Unknown]
  - Application site pain [Recovered/Resolved]

NARRATIVE: CASE EVENT DATE: 20130914
